FAERS Safety Report 13348579 (Version 1)
Quarter: 2017Q1

REPORT INFORMATION
  Report Type: Spontaneous
  Country: US (occurrence: US)
  Receive Date: 20170320
  Receipt Date: 20170320
  Transmission Date: 20170428
  Serious: No
  Sender: FDA-Public Use
  Company Number: US-CELGENEUS-USA-2017032966

PATIENT
  Age: 40 Year
  Sex: Male

DRUGS (1)
  1. OTEZLA [Suspect]
     Active Substance: APREMILAST
     Indication: PRODUCT USED FOR UNKNOWN INDICATION
     Dosage: 60 MILLIGRAM
     Route: 048
     Dates: start: 20170101, end: 20170303

REACTIONS (5)
  - Diarrhoea [Unknown]
  - Depression [Unknown]
  - Affective disorder [Unknown]
  - Nausea [Unknown]
  - Anger [Unknown]

NARRATIVE: CASE EVENT DATE: 20170201
